FAERS Safety Report 15935190 (Version 1)
Quarter: 2019Q1

REPORT INFORMATION
  Report Type: Spontaneous
  Country: US (occurrence: US)
  Receive Date: 20190207
  Receipt Date: 20190207
  Transmission Date: 20190417
  Serious: No
  Sender: FDA-Public Use
  Company Number: US-ASTRAZENECA-2019SE07585

PATIENT
  Age: 26864 Day
  Sex: Female

DRUGS (4)
  1. BEVESPI AEROSPHERE [Suspect]
     Active Substance: FORMOTEROL FUMARATE\GLYCOPYRROLATE
     Indication: CHRONIC OBSTRUCTIVE PULMONARY DISEASE
     Dosage: TWO INHALATIONS TWICE A DAY
     Route: 055
     Dates: start: 20190104
  2. BEVESPI AEROSPHERE [Suspect]
     Active Substance: FORMOTEROL FUMARATE\GLYCOPYRROLATE
     Indication: SJOGREN^S SYNDROME
     Dosage: TWO INHALATIONS TWICE A DAY
     Route: 055
     Dates: start: 20190104
  3. BEVESPI AEROSPHERE [Suspect]
     Active Substance: FORMOTEROL FUMARATE\GLYCOPYRROLATE
     Indication: CHRONIC OBSTRUCTIVE PULMONARY DISEASE
     Dosage: TWO PUFFS ONCE A DAY AND IF NECESSARY TWO PUFFS TWICE A DAY
     Route: 055
  4. BEVESPI AEROSPHERE [Suspect]
     Active Substance: FORMOTEROL FUMARATE\GLYCOPYRROLATE
     Indication: SJOGREN^S SYNDROME
     Dosage: TWO PUFFS ONCE A DAY AND IF NECESSARY TWO PUFFS TWICE A DAY
     Route: 055

REACTIONS (9)
  - Product use in unapproved indication [Unknown]
  - Tooth disorder [Unknown]
  - Visual impairment [Unknown]
  - Tooth loss [Unknown]
  - Intentional product misuse [Unknown]
  - Device malfunction [Unknown]
  - Vision blurred [Unknown]
  - Speech disorder [Unknown]
  - Off label use [Unknown]

NARRATIVE: CASE EVENT DATE: 20190111
